FAERS Safety Report 9290726 (Version 2)
Quarter: 2014Q1

REPORT INFORMATION
  Report Type: Spontaneous
  Country: GB (occurrence: GB)
  Receive Date: 20130515
  Receipt Date: 20140122
  Transmission Date: 20141002
  Serious: Yes (Other)
  Sender: FDA-Public Use
  Company Number: GB-PFIZER INC-2013144694

PATIENT
  Age: 66 Year
  Sex: Female

DRUGS (3)
  1. RAMIPRIL [Suspect]
     Indication: HYPERTENSION
     Dosage: 1.25 MG, ONCE DAILY
     Route: 065
  2. RAMIPRIL [Suspect]
     Dosage: 2.5 MG, ONCE DAILY (AT BEDTIME)
     Route: 065
     Dates: start: 20121217, end: 201304
  3. LEVOTHYROXINE [Concomitant]
     Dosage: 25 UG, UNK
     Route: 065

REACTIONS (15)
  - Drug prescribing error [Unknown]
  - Blood pressure fluctuation [Not Recovered/Not Resolved]
  - Mouth ulceration [Not Recovered/Not Resolved]
  - Confusional state [Not Recovered/Not Resolved]
  - Tremor [Not Recovered/Not Resolved]
  - Rash [Not Recovered/Not Resolved]
  - Skin reaction [Not Recovered/Not Resolved]
  - Rash macular [Not Recovered/Not Resolved]
  - Synovial cyst [Not Recovered/Not Resolved]
  - Musculoskeletal stiffness [Unknown]
  - Wound secretion [Unknown]
  - Skin infection [Unknown]
  - Erythema [Unknown]
  - Pruritus [Unknown]
  - Blister [Unknown]
